FAERS Safety Report 24727626 (Version 1)
Quarter: 2024Q4

REPORT INFORMATION
  Report Type: Spontaneous
  Country: US (occurrence: None)
  Receive Date: 20241212
  Receipt Date: 20241212
  Transmission Date: 20250114
  Serious: Yes (Other)
  Sender: Public
  Company Number: None

PATIENT
  Age: 62 Year
  Sex: Female

DRUGS (1)
  1. COSENTYX [Suspect]
     Active Substance: SECUKINUMAB
     Indication: Psoriatic arthropathy
     Dosage: FREQUENCY : MONTHLY;?
     Dates: start: 20240101

REACTIONS (4)
  - Renal cancer [None]
  - Therapeutic product effect incomplete [None]
  - Inappropriate schedule of product administration [None]
  - Injection site pain [None]

NARRATIVE: CASE EVENT DATE: 20241121
